FAERS Safety Report 6294877-5 (Version None)
Quarter: 2009Q3

REPORT INFORMATION
  Report Type: 
  Country: None (occurrence: None)
  Receive Date: 20090803
  Receipt Date: 20090727
  Transmission Date: 20100115
  Serious: Yes (Hospitalization)
  Sender: FDA-Public Use
  Company Number: JP-ELI_LILLY_AND_COMPANY-JP200906005096

PATIENT
  Sex: Male
  Weight: 50 kg

DRUGS (8)
  1. GEMZAR [Suspect]
     Indication: PANCREATIC CARCINOMA STAGE IV
     Dosage: 1000 MG, OTHER
     Route: 042
     Dates: start: 20090605, end: 20090619
  2. PANTOL [Concomitant]
     Dosage: 600 MG, DAILY (1/D)
     Route: 042
     Dates: start: 20090606
  3. GASTER [Concomitant]
     Dosage: 40 MG, DAILY (1/D)
     Route: 042
     Dates: start: 20090606
  4. PRIMPERAN /00041901/ [Concomitant]
     Dosage: 1 D/F, DAILY (1/D)
     Route: 042
     Dates: start: 20090606
  5. PREDONINE /00016203/ [Concomitant]
     Dosage: 10 MG, DAILY (1/D)
     Route: 042
     Dates: start: 20090618
  6. KYTRIL /01178102/ [Concomitant]
     Indication: PROPHYLAXIS
     Dosage: 1 D/F, DAILY (1/D)
     Route: 042
     Dates: start: 20090605, end: 20090615
  7. DECADRON /00016002/ [Concomitant]
     Indication: PROPHYLAXIS
     Dosage: 8 MG, DAILY (1/D)
     Route: 042
     Dates: start: 20090605, end: 20090619
  8. DUROTEP [Concomitant]
     Indication: PAIN MANAGEMENT
     Dosage: 8.4 MG, OTHER
     Route: 062
     Dates: start: 20090605

REACTIONS (3)
  - CEREBRAL INFARCTION [None]
  - DEHYDRATION [None]
  - NAUSEA [None]
